FAERS Safety Report 8481763-5 (Version None)
Quarter: 2012Q2

REPORT INFORMATION
  Report Type: 
  Country: None (occurrence: None)
  Receive Date: 20120402
  Receipt Date: 20091124
  Transmission Date: 20120825
  Serious: Yes (Hospitalization, Other)
  Sender: FDA-Public Use
  Company Number: PHEH2009US15955

PATIENT
  Age: 65 Year
  Sex: Male
  Weight: 97.5 kg

DRUGS (3)
  1. DIOVAN [Concomitant]
  2. PRISTIQ [Concomitant]
  3. EXFORGE HCT [Suspect]
     Indication: HYPERTENSION
     Dosage: 160/10/12.5, QD, ORAL
     Route: 048
     Dates: start: 20091012, end: 20091110

REACTIONS (9)
  - ASTHENIA [None]
  - POLYURIA [None]
  - HYPERPHAGIA [None]
  - URINE KETONE BODY PRESENT [None]
  - POLYDIPSIA [None]
  - WEIGHT DECREASED [None]
  - DRY MOUTH [None]
  - BLOOD GLUCOSE INCREASED [None]
  - FATIGUE [None]
